FAERS Safety Report 23954474 (Version 1)
Quarter: 2024Q2

REPORT INFORMATION
  Report Type: Spontaneous
  Country: US (occurrence: None)
  Receive Date: 20240610
  Receipt Date: 20240610
  Transmission Date: 20240716
  Serious: No
  Sender: FDA-Public Use
  Company Number: US-ROCHE-3419724

PATIENT
  Sex: Female

DRUGS (2)
  1. PERJETA [Suspect]
     Active Substance: PERTUZUMAB
     Indication: HER2 positive breast cancer
     Dosage: PERJETA HERCEPTIN COMBINED IN A SINGLE INFUSION ;ONGOING: YES
     Route: 042
  2. HERCEPTIN [Suspect]
     Active Substance: TRASTUZUMAB
     Indication: HER2 positive breast cancer
     Dosage: PERJETA HERCEPTIN COMBINED IN A SINGLE INFUSION ;ONGOING: YES
     Route: 041

REACTIONS (2)
  - Diarrhoea [Recovered/Resolved]
  - Off label use [Unknown]
